FAERS Safety Report 23595748 (Version 1)
Quarter: 2024Q1

REPORT INFORMATION
  Report Type: Spontaneous
  Country: US (occurrence: None)
  Receive Date: 20240304
  Receipt Date: 20240304
  Transmission Date: 20240409
  Serious: Yes (Other)
  Sender: FDA-Public Use
  Company Number: None

PATIENT
  Age: 60 Year
  Sex: Male
  Weight: 52.65 kg

DRUGS (1)
  1. HECTOROL [Suspect]
     Active Substance: DOXERCALCIFEROL
     Indication: Hyperparathyroidism secondary
     Dosage: OTHER FREQUENCY : EVERY TREATMENT;?
     Route: 040
     Dates: start: 20240217, end: 20240222

REACTIONS (5)
  - Dialysis [None]
  - Dyspnoea [None]
  - Erythema [None]
  - Hypotension [None]
  - Drug hypersensitivity [None]

NARRATIVE: CASE EVENT DATE: 20240222
